FAERS Safety Report 10024235 (Version 2)
Quarter: 2014Q2

REPORT INFORMATION
  Report Type: Spontaneous
  Country: US (occurrence: None)
  Receive Date: 20140318
  Receipt Date: 20140414
  Transmission Date: 20141212
  Serious: Yes (Other)
  Sender: FDA-Public Use
  Company Number: 2014P1002164

PATIENT
  Age: 38 Year
  Sex: Female

DRUGS (1)
  1. MYORISAN [Suspect]
     Dates: start: 20140131, end: 20140305

REACTIONS (4)
  - Human chorionic gonadotropin positive [None]
  - Maternal exposure during pregnancy [None]
  - Abortion induced [None]
  - Pregnancy [None]
